FAERS Safety Report 18899242 (Version 1)
Quarter: 2021Q1

REPORT INFORMATION
  Report Type: Spontaneous
  Country: RO (occurrence: RO)
  Receive Date: 20210216
  Receipt Date: 20210216
  Transmission Date: 20210420
  Serious: Yes (Hospitalization)
  Sender: FDA-Public Use
  Company Number: RO-ASTRAZENECA-2021A049093

PATIENT
  Age: 64 Year
  Sex: Female

DRUGS (4)
  1. DURVALUMAB. [Suspect]
     Active Substance: DURVALUMAB
     Route: 042
     Dates: start: 202009
  2. PACLITAXEL W/CARBOPLATIN [Concomitant]
     Active Substance: CARBOPLATIN\PACLITAXEL
     Dosage: PACLITAXEL 50 MG/M2 AND CARBOPLATIN AUC 2 WEEKLY, 4 SERIES
  3. DURVALUMAB. [Suspect]
     Active Substance: DURVALUMAB
     Dosage: UNKNOWN DOSE
     Route: 042
  4. PACLITAXEL W/CARBOPLATIN [Concomitant]
     Active Substance: CARBOPLATIN\PACLITAXEL
     Dosage: FOLLOWED BY 2 SERIES PACLITAXEL 200 MG / M2 AND CARBOPLATIN AUC 6

REACTIONS (1)
  - COVID-19 [Recovered/Resolved]

NARRATIVE: CASE EVENT DATE: 202012
